FAERS Safety Report 22587364 (Version 1)
Quarter: 2023Q2

REPORT INFORMATION
  Report Type: Report from Study
  Country: US (occurrence: US)
  Receive Date: 20230612
  Receipt Date: 20230612
  Transmission Date: 20230721
  Serious: Yes (Hospitalization, Other)
  Sender: FDA-Public Use
  Company Number: US-ABBVIE-5188685

PATIENT
  Sex: Male
  Weight: 83.46 kg

DRUGS (7)
  1. SKYRIZI [Suspect]
     Active Substance: RISANKIZUMAB-RZAA
     Indication: Psoriasis
     Dosage: FORM STRENGTH: 150 MILLIGRAM
     Route: 058
     Dates: start: 2022
  2. CETIRIZINE [Concomitant]
     Active Substance: CETIRIZINE HYDROCHLORIDE
     Indication: Hypersensitivity
  3. WARFARIN [Concomitant]
     Active Substance: WARFARIN
     Indication: Atrial fibrillation
  4. AMLODIPINE [Concomitant]
     Active Substance: AMLODIPINE BESYLATE
     Indication: Atrial fibrillation
  5. DOXYCYCLINE [Concomitant]
     Active Substance: DOXYCYCLINE
     Indication: Anticoagulant therapy
  6. VITAMIN D3 [Concomitant]
     Active Substance: CHOLECALCIFEROL
     Indication: Vitamin supplementation
  7. Bisporolol [Concomitant]
     Indication: Atrial fibrillation

REACTIONS (6)
  - Medical device implantation [Unknown]
  - Muscle disorder [Recovering/Resolving]
  - Body height decreased [Unknown]
  - Heart rate decreased [Recovered/Resolved]
  - Haemorrhage [Recovered/Resolved]
  - Radiotherapy [Unknown]

NARRATIVE: CASE EVENT DATE: 20230101
